FAERS Safety Report 5509983-X (Version None)
Quarter: 2007Q4

REPORT INFORMATION
  Report Type: 
  Country: None (occurrence: None)
  Receive Date: 20071108
  Receipt Date: 20061115
  Transmission Date: 20080405
  Serious: No
  Sender: FDA-Public Use
  Company Number: US-ABBOTT-02P-163-0192448-00

PATIENT

DRUGS (1)
  1. BIAXIN [Suspect]
     Indication: SINUSITIS
     Route: 048
     Dates: start: 20010101, end: 20010101

REACTIONS (2)
  - ANOSMIA [None]
  - DYSGEUSIA [None]
